FAERS Safety Report 18374287 (Version 2)
Quarter: 2021Q1

REPORT INFORMATION
  Report Type: Spontaneous
  Country: BR (occurrence: BR)
  Receive Date: 20201012
  Receipt Date: 20210105
  Transmission Date: 20210419
  Serious: No
  Sender: FDA-Public Use
  Company Number: NVSC2020BR274351

PATIENT
  Age: 55 Year
  Sex: Female
  Weight: 60 kg

DRUGS (2)
  1. PATANOL S [Concomitant]
     Active Substance: OLOPATADINE HYDROCHLORIDE
     Indication: HYPERSENSITIVITY
     Route: 065
  2. MAXITROL [Suspect]
     Active Substance: DEXAMETHASONE\NEOMYCIN SULFATE\POLYMYXIN B SULFATE
     Indication: DRUG HYPERSENSITIVITY
     Route: 065

REACTIONS (1)
  - Prescription drug used without a prescription [Unknown]
